FAERS Safety Report 11199368 (Version 1)
Quarter: 2015Q2

REPORT INFORMATION
  Report Type: Spontaneous
  Country: IT (occurrence: None)
  Receive Date: 20150616
  Receipt Date: 20150616
  Transmission Date: 20150821
  Serious: Yes (Hospitalization)
  Sender: FDA-Public Use
  Company Number: DEP_03017_2015

PATIENT
  Age: 59 Year
  Sex: Male

DRUGS (1)
  1. PECFENT [Suspect]
     Active Substance: FENTANYL CITRATE
     Indication: PRODUCT USED FOR UNKNOWN INDICATION
     Dosage: 1 BOTTLE, DF

REACTIONS (6)
  - Blood calcium decreased [None]
  - Vitamin D increased [None]
  - Depressed level of consciousness [None]
  - Withdrawal syndrome [None]
  - Respiratory failure [None]
  - Constipation [None]
